FAERS Safety Report 17683290 (Version 4)
Quarter: 2020Q2

REPORT INFORMATION
  Report Type: Spontaneous
  Country: FR (occurrence: FR)
  Receive Date: 20200420
  Receipt Date: 20200626
  Transmission Date: 20200714
  Serious: Yes (Death, Life-Threatening, Hospitalization, Other)
  Sender: FDA-Public Use
  Company Number: FR-SUN PHARMACEUTICAL INDUSTRIES LTD-2020R1-244311

PATIENT
  Age: 9 Year
  Sex: Female
  Weight: 30 kg

DRUGS (1)
  1. PARACETAMOL [Suspect]
     Active Substance: ACETAMINOPHEN
     Indication: PAIN
     Dosage: FOUR THERAPEUTIC DOSES OF ACETAMINOPHEN AT 4-H INTERVALS
     Route: 048

REACTIONS (21)
  - Haemodynamic instability [Unknown]
  - Hepatic steatosis [Unknown]
  - Hepatic failure [Fatal]
  - Intracranial pressure increased [Unknown]
  - Toxicity to various agents [Fatal]
  - Cardiac failure [Unknown]
  - Encephalopathy [Fatal]
  - Subarachnoid haemorrhage [Unknown]
  - Mydriasis [Fatal]
  - Subdural haemorrhage [Unknown]
  - Hepatic infiltration eosinophilic [Fatal]
  - Hepatic necrosis [Fatal]
  - Acute hepatic failure [Fatal]
  - Drug-induced liver injury [Fatal]
  - Renal failure [Fatal]
  - Brain oedema [Unknown]
  - Renal tubular necrosis [Fatal]
  - Oedema [Fatal]
  - Hepatorenal syndrome [Unknown]
  - Hepatitis fulminant [Fatal]
  - Brain death [Fatal]
